FAERS Safety Report 8148210-4 (Version None)
Quarter: 2012Q1

REPORT INFORMATION
  Report Type: 
  Country: None (occurrence: None)
  Receive Date: 20120218
  Receipt Date: 20110506
  Transmission Date: 20120608
  Serious: No
  Sender: FDA-Public Use
  Company Number: US-ALLERGAN-1106295US

PATIENT
  Sex: Female

DRUGS (1)
  1. BOTULINUM TOXIN TYPE A [Suspect]
     Indication: MIGRAINE
     Dosage: 150 UNITS, SINGLE
     Route: 030
     Dates: start: 20110426, end: 20110426

REACTIONS (5)
  - RASH [None]
  - BURNING SENSATION [None]
  - HEAD DISCOMFORT [None]
  - DIZZINESS [None]
  - MUSCULAR WEAKNESS [None]
